FAERS Safety Report 17101714 (Version 1)
Quarter: 2019Q4

REPORT INFORMATION
  Report Type: Spontaneous
  Country: JP (occurrence: JP)
  Receive Date: 20191202
  Receipt Date: 20191202
  Transmission Date: 20200122
  Serious: Yes (Death, Other)
  Sender: FDA-Public Use
  Company Number: JP-OTSUKA-000654

PATIENT
  Age: 17 Year
  Sex: Male

DRUGS (2)
  1. BUSULFEX [Suspect]
     Active Substance: BUSULFAN
     Indication: STEM CELL TRANSPLANT
     Dosage: 172 MG, UNK
     Route: 042
     Dates: start: 20070818, end: 20070819
  2. FLUDARABINE PHOSPHATE. [Concomitant]
     Active Substance: FLUDARABINE PHOSPHATE
     Indication: PRODUCT USED FOR UNKNOWN INDICATION
     Dosage: UNK
     Route: 065
     Dates: start: 20070814, end: 20070819

REACTIONS (9)
  - Hepatic failure [Fatal]
  - Thrombotic microangiopathy [Fatal]
  - Nausea [Not Recovered/Not Resolved]
  - Bacterial sepsis [Recovered/Resolved]
  - Vomiting [Not Recovered/Not Resolved]
  - Venoocclusive disease [Fatal]
  - Oesophageal haemorrhage [Not Recovered/Not Resolved]
  - Stomatitis [Not Recovered/Not Resolved]
  - Staphylococcal sepsis [Recovered/Resolved]

NARRATIVE: CASE EVENT DATE: 20070828
